FAERS Safety Report 5036206-0 (Version None)
Quarter: 2006Q2

REPORT INFORMATION
  Report Type: 
  Country: None (occurrence: None)
  Receive Date: 20060531
  Receipt Date: 20050926
  Transmission Date: 20061013
  Serious: Yes (Other)
  Sender: FDA-Public Use
  Company Number: 200513448GDS

PATIENT
  Age: 21 Year
  Sex: Male

DRUGS (3)
  1. NIFEDIPINE [Suspect]
     Indication: HYPERTENSION
     Dosage: ORAL
     Route: 048
  2. NITROCLIVERINA (GLYCERYL TRINITRATE) [Suspect]
     Indication: HYPERTENSION
     Dosage: ORAL
     Route: 048
  3. LABETALOL HCL [Suspect]
     Indication: HYPERTENSION

REACTIONS (3)
  - ASTHENIA [None]
  - ORTHOSTATIC HYPOTENSION [None]
  - SYNCOPE [None]
